FAERS Safety Report 8954688 (Version 1)
Quarter: 2012Q4

REPORT INFORMATION
  Report Type: 
  Country: US (occurrence: US)
  Receive Date: 20121207
  Receipt Date: 20121207
  Transmission Date: 20130627
  Serious: No
  Sender: FDA-Public Use
  Company Number: US-GLAXOSMITHKLINE-A0973242A

PATIENT
  Age: 77 Year
  Sex: Male

DRUGS (15)
  1. AVANDAMET [Suspect]
     Indication: TYPE 2 DIABETES MELLITUS
     Dosage: 1TAB Twice per day
     Route: 048
  2. UNKNOWN MEDICATION [Concomitant]
  3. ALLOPURINOL [Concomitant]
  4. LIPITOR [Concomitant]
  5. DICLOFENAC [Concomitant]
  6. AVAPRO [Concomitant]
  7. TRICOR [Concomitant]
  8. VITAMIN D [Concomitant]
  9. COQ10 [Concomitant]
  10. B12 [Concomitant]
  11. BABY ASPIRIN [Concomitant]
  12. UNKNOWN MEDICATION [Concomitant]
  13. HUMALOG [Concomitant]
  14. NOVALAN [Concomitant]
  15. AMLODIPINE BESYLATE [Concomitant]

REACTIONS (4)
  - Hypertension [Not Recovered/Not Resolved]
  - Fatigue [Unknown]
  - Oedema peripheral [Unknown]
  - Dyspnoea [Unknown]
